FAERS Safety Report 4957881-2 (Version None)
Quarter: 2006Q1

REPORT INFORMATION
  Report Type: 
  Country: None (occurrence: None)
  Receive Date: 20060127
  Receipt Date: 20050815
  Transmission Date: 20060701
  Serious: Yes (Death)
  Sender: FDA-Public Use
  Company Number: 05-08-1438

PATIENT
  Age: 54 Year
  Sex: Female
  Weight: 77.1115 kg

DRUGS (8)
  1. CLOZAPINE [Suspect]
     Indication: SCHIZOPHRENIA
     Dosage: 300 QHS; ORAL
     Route: 048
     Dates: start: 20031001, end: 20050801
  2. RISPERIDONE [Concomitant]
  3. BENZTROPINE MESYLATE [Concomitant]
  4. LORAZEPAM [Concomitant]
  5. DOCUSATE SODIUM [Concomitant]
  6. LEVOTHYROXINE SODIUM [Concomitant]
  7. SALBUTAMOL [Concomitant]
  8. DOCUSATE CALCIUM [Concomitant]

REACTIONS (1)
  - UNEVALUABLE EVENT [None]
